FAERS Safety Report 8815548 (Version 2)
Quarter: 2012Q4

REPORT INFORMATION
  Report Type: 
  Country: US (occurrence: US)
  Receive Date: 20120928
  Receipt Date: 20121221
  Transmission Date: 20130627
  Serious: Yes (Other)
  Sender: FDA-Public Use
  Company Number: US-ASTRAZENECA-2012SE72807

PATIENT
  Age: 77 Year
  Sex: Female

DRUGS (2)
  1. ARIMIDEX [Suspect]
     Route: 048
  2. IMITREX [Concomitant]

REACTIONS (4)
  - Breast cancer recurrent [Unknown]
  - Cystitis [Unknown]
  - Diarrhoea [Unknown]
  - Hearing impaired [Unknown]
